FAERS Safety Report 9862078 (Version 2)
Quarter: 2014Q1

REPORT INFORMATION
  Report Type: Spontaneous
  Country: US (occurrence: US)
  Receive Date: 20140203
  Receipt Date: 20140203
  Transmission Date: 20141002
  Serious: Yes (Hospitalization)
  Sender: FDA-Public Use
  Company Number: US-ASTRAZENECA-2013SE79506

PATIENT
  Age: 65 Year
  Sex: Male
  Weight: 129.7 kg

DRUGS (16)
  1. ONGLYZA [Suspect]
     Indication: TYPE 2 DIABETES MELLITUS
     Route: 048
     Dates: start: 2011, end: 20130830
  2. GLUCOPHAGE (NON AZ PRODUCT) [Suspect]
     Route: 065
  3. GLUCOPHAGE (NON AZ PRODUCT) [Suspect]
     Route: 065
  4. LISINOPRIL(NON AZ PRODUCT) [Suspect]
     Indication: HYPERTENSION
     Route: 048
  5. ATORVASTATIN [Suspect]
     Indication: HYPERLIPIDAEMIA
     Route: 065
  6. TRICOR [Suspect]
     Indication: HYPERLIPIDAEMIA
     Route: 065
  7. CENTRUM SILVER [Concomitant]
  8. PANTOPRAZOLE SODIUM [Concomitant]
  9. CARVEDILOL [Concomitant]
  10. CLONIDINE HCL [Concomitant]
  11. CLONIDINE HCL [Concomitant]
     Dosage: 1DF:01.MG 2 TABS
  12. ASPIRIN [Concomitant]
  13. AMLODIPINE BESYLATE [Concomitant]
  14. HYDROCHLOROTHIAZIDE [Concomitant]
  15. TYLENOL ARTHRITIS [Concomitant]
     Indication: PAIN
  16. MYCOPHENOLATE MOFETIL [Concomitant]

REACTIONS (1)
  - Pancreatitis acute [Unknown]
